FAERS Safety Report 6496259-X (Version None)
Quarter: 2009Q4

REPORT INFORMATION
  Report Type: 
  Country: None (occurrence: None)
  Receive Date: 20091214
  Receipt Date: 20091204
  Transmission Date: 20100525
  Serious: Yes (Hospitalization)
  Sender: FDA-Public Use
  Company Number: BE-WYE-G05073509

PATIENT

DRUGS (2)
  1. TYGACIL [Suspect]
     Indication: SKIN INFECTION
     Route: 042
     Dates: start: 20091127, end: 20091203
  2. INNOHEP [Concomitant]
     Indication: THROMBOSIS PROPHYLAXIS
     Dosage: 18000 IU
     Route: 058
     Dates: start: 20091126, end: 20091204

REACTIONS (2)
  - RASH FOLLICULAR [None]
  - RASH PRURITIC [None]
